FAERS Safety Report 6061455-2 (Version None)
Quarter: 2009Q1

REPORT INFORMATION
  Report Type: 
  Country: None (occurrence: None)
  Receive Date: 20090202
  Receipt Date: 20090121
  Transmission Date: 20090719
  Serious: Yes (Other)
  Sender: FDA-Public Use
  Company Number: JP-PFIZER INC-2008150987

PATIENT

DRUGS (4)
  1. ZYVOX [Suspect]
     Indication: PNEUMONIA STAPHYLOCOCCAL
     Dosage: UNK
     Route: 042
     Dates: start: 20070907
  2. TAXOTERE [Suspect]
     Indication: PROSTATE CANCER
     Dosage: 40 MG, 1X/DAY
     Route: 042
     Dates: start: 20070518, end: 20070719
  3. PARAPLATIN [Suspect]
     Indication: PROSTATE CANCER
     Dosage: 600 MG, 1X/DAY
     Route: 042
     Dates: start: 20070518, end: 20070719
  4. ESTRAMUSTINE PHOSPHATE SODIUM [Suspect]
     Indication: PROSTATE CANCER
     Dosage: 600 MG, 2X/DAY
     Dates: start: 20070518

REACTIONS (3)
  - PLATELET COUNT DECREASED [None]
  - PLEURAL EFFUSION [None]
  - PULMONARY OEDEMA [None]
